FAERS Safety Report 7054002-X (Version None)
Quarter: 2010Q4

REPORT INFORMATION
  Report Type: 
  Country: None (occurrence: None)
  Receive Date: 20101020
  Receipt Date: 20101016
  Transmission Date: 20110411
  Serious: Yes (Other)
  Sender: FDA-Public Use
  Company Number: US-PFIZER INC-2010132162

PATIENT
  Sex: Male
  Weight: 79.4 kg

DRUGS (2)
  1. FLAGYL [Suspect]
     Indication: POUCHITIS
     Dosage: 100 MG, 3X/DAY
     Route: 048
     Dates: start: 20101007, end: 20101001
  2. CIPRO [Concomitant]
     Dosage: UNK

REACTIONS (1)
  - PARAESTHESIA [None]
